FAERS Safety Report 25135046 (Version 2)
Quarter: 2025Q2

REPORT INFORMATION
  Report Type: Spontaneous
  Country: US (occurrence: US)
  Receive Date: 20250328
  Receipt Date: 20250417
  Transmission Date: 20250717
  Serious: No
  Sender: PFIZER
  Company Number: US-PFIZER INC-202500067350

PATIENT
  Age: 74 Year
  Sex: Female

DRUGS (1)
  1. VELSIPITY [Suspect]
     Active Substance: ETRASIMOD ARGININE
     Dosage: 2 MG, 1X/DAY

REACTIONS (14)
  - Drug ineffective [Unknown]
  - Fatigue [Unknown]
  - Haemorrhage [Unknown]
  - Diarrhoea [Unknown]
  - Flatulence [Unknown]
  - Hypotension [Unknown]
  - Headache [Unknown]
  - Dyspnoea [Unknown]
  - Pain [Unknown]
  - Heart rate increased [Unknown]
  - Nausea [Unknown]
  - Weight decreased [Unknown]
  - Dehydration [Unknown]
  - Movement disorder [Unknown]
